FAERS Safety Report 8170951-3 (Version None)
Quarter: 2012Q1

REPORT INFORMATION
  Report Type: 
  Country: None (occurrence: None)
  Receive Date: 20120228
  Receipt Date: 20111103
  Transmission Date: 20120608
  Serious: Yes (Other)
  Sender: FDA-Public Use
  Company Number: US-BAYER-201014968NA

PATIENT
  Age: 58 Year
  Sex: Female

DRUGS (17)
  1. CLONAZEPAM [Concomitant]
     Dosage: UNK UNK, PRN
  2. BETASERON [Suspect]
     Route: 058
     Dates: start: 20100101, end: 20100101
  3. BACLOFEN [Concomitant]
  4. TYLENOL PM [Concomitant]
  5. BETASERON [Suspect]
     Route: 058
     Dates: start: 20100211
  6. BETASERON [Suspect]
     Dosage: 5 MIU, QOD
     Route: 058
     Dates: start: 20110924
  7. NEURONTIN [Concomitant]
     Dosage: UNK UNK, PRN
  8. BETASERON [Suspect]
     Route: 058
     Dates: start: 20100202
  9. ANTIHISTAMINES [Concomitant]
     Indication: ANGIOEDEMA
     Dates: end: 20091201
  10. PROVIGIL [Concomitant]
     Dates: start: 20100115
  11. PREDNISONE ACETATE [Concomitant]
     Indication: ANGIOEDEMA
  12. LISINOPRIL [Suspect]
     Dosage: UNK
     Dates: start: 20100101, end: 20110101
  13. BETASERON [Suspect]
     Indication: RELAPSING-REMITTING MULTIPLE SCLEROSIS
     Route: 058
     Dates: start: 20100112
  14. RITALIN [Concomitant]
     Dates: end: 20100115
  15. IBUPROFEN [Concomitant]
  16. REBIF [Concomitant]
     Dosage: UNK
     Dates: start: 20101101, end: 20110115
  17. BETASERON [Suspect]
     Dosage: 8 MIU, QOD
     Route: 058
     Dates: start: 20100101, end: 20101007

REACTIONS (18)
  - PRURITUS [None]
  - INJECTION SITE PRURITUS [None]
  - SOMNOLENCE [None]
  - DYSPHAGIA [None]
  - RASH [None]
  - URTICARIA [None]
  - NAUSEA [None]
  - INJECTION SITE ERYTHEMA [None]
  - PAIN IN EXTREMITY [None]
  - THROAT TIGHTNESS [None]
  - OROPHARYNGEAL SPASM [None]
  - ARTHRALGIA [None]
  - DYSPHONIA [None]
  - INJECTION SITE INFLAMMATION [None]
  - MUSCLE SPASMS [None]
  - ANGIOEDEMA [None]
  - HEADACHE [None]
  - PRURITUS GENERALISED [None]
